FAERS Safety Report 4442004-9 (Version None)
Quarter: 2004Q3

REPORT INFORMATION
  Report Type: 
  Country: None (occurrence: None)
  Receive Date: 20040901
  Receipt Date: 20040825
  Transmission Date: 20050211
  Serious: Yes (Death, Hospitalization)
  Sender: FDA-Public Use
  Company Number: THQ2004A00797

PATIENT
  Age: 54 Year
  Sex: Male

DRUGS (1)
  1. LANSOPRAZOLE [Suspect]
     Indication: GASTRIC DISORDER
     Route: 048

REACTIONS (3)
  - HALLUCINATION [None]
  - INJURY ASPHYXIATION [None]
  - MALAISE [None]
